FAERS Safety Report 10516199 (Version 1)
Quarter: 2014Q4

REPORT INFORMATION
  Report Type: Spontaneous
  Country: HU (occurrence: HU)
  Receive Date: 20141014
  Receipt Date: 20141014
  Transmission Date: 20150528
  Serious: Yes (Life-Threatening)
  Sender: FDA-Public Use
  Company Number: HU-WATSON-2014-21797

PATIENT
  Age: 68 Year
  Sex: Female

DRUGS (11)
  1. BOPACATIN [Suspect]
     Active Substance: CARBOPLATIN
     Indication: OVARIAN EPITHELIAL CANCER METASTATIC
     Dosage: 450 MG, TOTAL. PLANNED TOTAL DOSE OF PREPARED FROM TWO VIALS:450MG CARBOPLATIN IN 520 ML SALINE
     Route: 041
     Dates: start: 20140924, end: 20140924
  2. BOPACATIN [Suspect]
     Active Substance: CARBOPLATIN
     Dosage: 450 MG, TOTAL.  PLANNED TOTAL DOSE OF PREPARED FROM TWO VIALS:450MG CARBOPLATIN IN 520 ML SALINE
     Route: 041
     Dates: start: 20140924, end: 20140924
  3. NEBILET [Concomitant]
     Active Substance: NEBIVOLOL
     Indication: HYPERTENSION
     Dosage: UNK
     Route: 048
  4. INSULIN [Concomitant]
     Active Substance: INSULIN NOS
     Indication: TYPE 1 DIABETES MELLITUS
     Dosage: 20 IU, QHS. BASAL INSULIN ADMINISTERED DAILY AT 22:00 P.M.
     Route: 065
  5. CERUCAL [Concomitant]
     Indication: PREMEDICATION
     Dosage: 10 MG, TOTAL
     Route: 041
     Dates: start: 20140924, end: 20140924
  6. ZOFRAN                             /00955301/ [Concomitant]
     Active Substance: ONDANSETRON HYDROCHLORIDE
     Indication: PREMEDICATION
     Dosage: 1 DF, TOTAL. 1 AMPOULE ADMINISTERED, VIAL SIZE UNSPECIFIED
     Route: 041
     Dates: start: 20140924, end: 20140924
  7. METOTHYRIN [Concomitant]
     Indication: HYPERTHYROIDISM
     Dosage: UNK
     Route: 048
  8. ALLOPURINOL. [Concomitant]
     Active Substance: ALLOPURINOL
     Indication: GOUT
     Dosage: UNK
     Route: 048
  9. CHOLECALCIFEROL [Concomitant]
     Active Substance: CHOLECALCIFEROL
     Indication: OSTEOPOROSIS
     Dosage: UNK
     Route: 048
  10. APO-FAMOTIDIN [Concomitant]
     Indication: ANTACID THERAPY
     Dosage: UNK
     Route: 048
  11. COVEREX [Concomitant]
     Indication: HYPERTENSION
     Dosage: UNK
     Route: 048

REACTIONS (1)
  - Anaphylactic reaction [Recovered/Resolved]

NARRATIVE: CASE EVENT DATE: 20140924
